FAERS Safety Report 24372842 (Version 1)
Quarter: 2024Q3

REPORT INFORMATION
  Report Type: Spontaneous
  Country: EU (occurrence: EU)
  Receive Date: 20240927
  Receipt Date: 20240927
  Transmission Date: 20241017
  Serious: Yes (Death)
  Sender: ETHYPHARM
  Company Number: None

PATIENT

DRUGS (6)
  1. BUPRENORPHINE HYDROCHLORIDE [Suspect]
     Active Substance: BUPRENORPHINE HYDROCHLORIDE
     Dosage: INCONNUE
     Dates: end: 202110
  2. CANNABIS SATIVA SUBSP. INDICA TOP [Suspect]
     Active Substance: CANNABIS SATIVA SUBSP. INDICA TOP
     Dosage: INCONNUE
     Dates: end: 202110
  3. OXAZEPAM [Suspect]
     Active Substance: OXAZEPAM
     Dosage: INCONNUE
     Dates: end: 202110
  4. PHOLCODINE [Suspect]
     Active Substance: PHOLCODINE
     Dosage: INCONNUE
     Dates: end: 202110
  5. ALCOHOL [Suspect]
     Active Substance: ALCOHOL
     Dosage: INCONNUE
     Dates: end: 202110
  6. COCAINE [Suspect]
     Active Substance: COCAINE
     Dosage: INCONNUE
     Dates: end: 202110

REACTIONS (2)
  - Drug abuse [Fatal]
  - Death [Fatal]
